FAERS Safety Report 13117551 (Version 1)
Quarter: 2017Q1

REPORT INFORMATION
  Report Type: Spontaneous
  Country: JP (occurrence: JP)
  Receive Date: 20170116
  Receipt Date: 20170116
  Transmission Date: 20170428
  Serious: Yes (Hospitalization)
  Sender: FDA-Public Use
  Company Number: JP-ELI_LILLY_AND_COMPANY-JP201701002125

PATIENT
  Age: 76 Year
  Sex: Male
  Weight: 51 kg

DRUGS (12)
  1. LONGES [Concomitant]
     Active Substance: LISINOPRIL
  2. FUROSEMIDE. [Concomitant]
     Active Substance: FUROSEMIDE
  3. AMLODIN [Concomitant]
     Active Substance: AMLODIPINE BESYLATE
  4. METHYCOBAL [Concomitant]
     Active Substance: METHYLCOBALAMIN
  5. FERROUS CITRATE [Concomitant]
     Active Substance: FERROUS CITRATE
  6. PACLITAXEL. [Suspect]
     Active Substance: PACLITAXEL
     Indication: GASTRIC CANCER
     Dosage: 120 MG, UNKNOWN
     Route: 042
     Dates: start: 20160107, end: 20161013
  7. NEXIUM [Concomitant]
     Active Substance: ESOMEPRAZOLE MAGNESIUM
  8. SENNASID                           /00571901/ [Concomitant]
     Active Substance: SENNOSIDES A AND B
  9. CYRAMZA [Suspect]
     Active Substance: RAMUCIRUMAB
     Indication: GASTRIC CANCER
     Dosage: 450 MG, UNKNOWN
     Route: 042
     Dates: start: 20160107, end: 20161013
  10. PANALDINE [Concomitant]
     Active Substance: TICLOPIDINE HYDROCHLORIDE
  11. PRAVASTATIN. [Concomitant]
     Active Substance: PRAVASTATIN
  12. MAGNESIUM OXIDE. [Concomitant]
     Active Substance: MAGNESIUM OXIDE

REACTIONS (1)
  - Pneumonitis [Recovered/Resolved]

NARRATIVE: CASE EVENT DATE: 20161027
